FAERS Safety Report 6567826-X (Version None)
Quarter: 2010Q1

REPORT INFORMATION
  Report Type: 
  Country: None (occurrence: None)
  Receive Date: 20100203
  Receipt Date: 20100125
  Transmission Date: 20100710
  Serious: No
  Sender: FDA-Public Use
  Company Number: US-JNJFOC-20091106962

PATIENT
  Sex: Male

DRUGS (6)
  1. INVEGA SUSTENNA [Suspect]
     Indication: SCHIZOPHRENIA
     Route: 030
  2. INVEGA SUSTENNA [Suspect]
     Route: 030
  3. INVEGA [Concomitant]
     Indication: SCHIZOPHRENIA
     Route: 048
  4. KLONOPIN [Concomitant]
     Indication: DRUG USE FOR UNKNOWN INDICATION
     Route: 048
  5. ANTIDEPRESSANT NOS [Concomitant]
     Indication: DRUG USE FOR UNKNOWN INDICATION
  6. LITHIUM CARBONATE [Concomitant]
     Indication: SCHIZOPHRENIA

REACTIONS (2)
  - LETHARGY [None]
  - SOMNOLENCE [None]
